FAERS Safety Report 5335444-7 (Version None)
Quarter: 2007Q2

REPORT INFORMATION
  Report Type: 
  Country: None (occurrence: None)
  Receive Date: 20070525
  Receipt Date: 20070517
  Transmission Date: 20071010
  Serious: Yes (Other)
  Sender: FDA-Public Use
  Company Number: US-PFIZER INC-2007040318

PATIENT
  Sex: Female

DRUGS (11)
  1. NEURONTIN [Suspect]
     Indication: PAIN IN EXTREMITY
  2. CHANTIX [Suspect]
     Indication: SMOKING CESSATION THERAPY
  3. ADVAIR DISKUS 100/50 [Concomitant]
  4. SPIRIVA [Concomitant]
  5. XOPENEX [Concomitant]
  6. COMBIVENT [Concomitant]
  7. IBANDRONATE SODIUM [Concomitant]
  8. FIORINAL [Concomitant]
  9. LORTAB [Concomitant]
  10. POLYETHYLENE GLYCOL [Concomitant]
     Indication: LAXATIVE SUPPORTIVE CARE
  11. LEVOTHYROXINE SODIUM [Concomitant]

REACTIONS (3)
  - DIZZINESS [None]
  - HYPOXIA [None]
  - PAIN IN EXTREMITY [None]
